FAERS Safety Report 5076115-4 (Version None)
Quarter: 2006Q3

REPORT INFORMATION
  Report Type: 
  Country: None (occurrence: None)
  Receive Date: 20060807
  Receipt Date: 20060726
  Transmission Date: 20061208
  Serious: Yes (Other)
  Sender: FDA-Public Use
  Company Number: 2006061714

PATIENT
  Age: 62 Year
  Sex: Male
  Weight: 77.1115 kg

DRUGS (2)
  1. LIPITOR [Suspect]
     Indication: PAIN
     Dosage: 10 MG (10 MG, 1 IN 1 D), ORAL
     Route: 048
     Dates: start: 20051111
  2. ASPIRIN [Concomitant]

REACTIONS (12)
  - BREAST ATROPHY [None]
  - BREAST ENLARGEMENT [None]
  - CONTUSION [None]
  - DERMATITIS ALLERGIC [None]
  - DRY SKIN [None]
  - HAEMORRHAGE [None]
  - IRRITABILITY [None]
  - MYALGIA [None]
  - PRURITUS [None]
  - RETINOPATHY [None]
  - URINE OUTPUT DECREASED [None]
  - VITREOUS FLOATERS [None]
